FAERS Safety Report 13966704 (Version 1)
Quarter: 2017Q3

REPORT INFORMATION
  Report Type: Spontaneous
  Country: US (occurrence: US)
  Receive Date: 20170914
  Receipt Date: 20170914
  Transmission Date: 20171128
  Serious: Yes (Other)
  Sender: FDA-Public Use
  Company Number: US-UNICHEM LABORATORIES LIMITED-UCM201709-000232

PATIENT
  Age: 1 Year
  Sex: Female
  Weight: 8.9 kg

DRUGS (1)
  1. LAMOTRIGINE. [Suspect]
     Active Substance: LAMOTRIGINE

REACTIONS (4)
  - Serotonin syndrome [Unknown]
  - Nausea [Unknown]
  - Accidental overdose [Unknown]
  - Toxicity to various agents [Unknown]
